FAERS Safety Report 8299807-2 (Version None)
Quarter: 2012Q2

REPORT INFORMATION
  Report Type: 
  Country: None (occurrence: None)
  Receive Date: 20120419
  Receipt Date: 20120419
  Transmission Date: 20120825
  Serious: Yes (Life-Threatening)
  Sender: FDA-Public Use
  Company Number: None

PATIENT
  Sex: Female
  Weight: 80 kg

DRUGS (9)
  1. FERAHEME [Suspect]
     Indication: NEPHROGENIC ANAEMIA
     Dosage: 510 MG
     Route: 040
     Dates: start: 20120406, end: 20120406
  2. INSULIN LISPRO [Concomitant]
     Route: 051
  3. ASPIRIN [Concomitant]
     Route: 048
  4. INSULIN DETEMIR [Concomitant]
     Route: 051
  5. FLUDROCORTISONE ACETATE [Concomitant]
     Route: 048
  6. FUROSEMIDE [Concomitant]
     Route: 048
  7. CARVEDILOL [Concomitant]
     Route: 048
  8. CLOPIDOGREL [Concomitant]
     Route: 048
  9. PRAVASTATIN [Concomitant]
     Route: 048

REACTIONS (6)
  - FEELING ABNORMAL [None]
  - DYSPNOEA [None]
  - RESPIRATORY ARREST [None]
  - PULSE ABSENT [None]
  - ANAPHYLACTIC REACTION [None]
  - UNRESPONSIVE TO STIMULI [None]
